FAERS Safety Report 12556073 (Version 1)
Quarter: 2016Q3

REPORT INFORMATION
  Report Type: Spontaneous
  Country: IT (occurrence: IT)
  Receive Date: 20160714
  Receipt Date: 20160714
  Transmission Date: 20161109
  Serious: Yes (Other)
  Sender: FDA-Public Use
  Company Number: IT-CIPLA LTD.-2016IT08516

PATIENT

DRUGS (6)
  1. EPIRUBICIN [Suspect]
     Active Substance: EPIRUBICIN
     Indication: UNDIFFERENTIATED SARCOMA
     Dosage: 60 MG/M2,DAYS 1-2 EVERY 3 WEEKS FOR 5 CYCLES
     Route: 042
  2. TRABECTEDIN [Suspect]
     Active Substance: TRABECTEDIN
     Dosage: 1.5 MG/M2 FOR 2 CYCLES
     Route: 042
     Dates: start: 201202
  3. TRABECTEDIN [Suspect]
     Active Substance: TRABECTEDIN
     Dosage: 1.5 MG/M2,2 CYCLES
     Route: 042
     Dates: start: 201310
  4. TRABECTEDIN [Suspect]
     Active Substance: TRABECTEDIN
     Dosage: 1.5 MG/M2 FOR 18 CYCLES
     Route: 042
     Dates: start: 201310
  5. IFOSFAMIDE. [Suspect]
     Active Substance: IFOSFAMIDE
     Indication: UNDIFFERENTIATED SARCOMA
     Dosage: 3000 MG/M2, DAYS 1-3 EVERY 3 WEEKS FOR 5 CYCLES
     Route: 042
  6. TRABECTEDIN [Suspect]
     Active Substance: TRABECTEDIN
     Indication: UNDIFFERENTIATED SARCOMA
     Dosage: 1.5 MG/M2, 24 HOURS INFUSION EVERY 3 WEEKS
     Route: 042
     Dates: start: 200902, end: 201003

REACTIONS (1)
  - Disease recurrence [Recovered/Resolved]

NARRATIVE: CASE EVENT DATE: 200902
